FAERS Safety Report 6010711-2 (Version None)
Quarter: 2008Q4

REPORT INFORMATION
  Report Type: 
  Country: None (occurrence: None)
  Receive Date: 20081218
  Receipt Date: 20081210
  Transmission Date: 20090506
  Serious: Yes (Death)
  Sender: FDA-Public Use
  Company Number: NZ-AMGEN-QUU323125

PATIENT
  Sex: Female

DRUGS (4)
  1. NEUPOGEN [Suspect]
     Indication: DRUG USE FOR UNKNOWN INDICATION
  2. DEXAMETHASONE [Concomitant]
  3. HALOPERIDOL [Concomitant]
  4. OXYCODONE [Concomitant]

REACTIONS (1)
  - DEATH [None]
